FAERS Safety Report 7070750-X (Version None)
Quarter: 2010Q4

REPORT INFORMATION
  Report Type: 
  Country: None (occurrence: None)
  Receive Date: 20101029
  Receipt Date: 20101025
  Transmission Date: 20110411
  Serious: Yes (Hospitalization)
  Sender: FDA-Public Use
  Company Number: GB-ASTRAZENECA-2010SE50442

PATIENT
  Sex: Female

DRUGS (2)
  1. BUPIVACAINE HCL [Suspect]
     Indication: SPINAL ANAESTHESIA
     Route: 037
  2. DIAMORPHINE [Suspect]
     Indication: SPINAL ANAESTHESIA
     Route: 039

REACTIONS (1)
  - ARACHNOID CYST [None]
